FAERS Safety Report 18247089 (Version 2)
Quarter: 2020Q4

REPORT INFORMATION
  Report Type: Report from Study
  Country: GB (occurrence: GB)
  Receive Date: 20200909
  Receipt Date: 20201001
  Transmission Date: 20210113
  Serious: Yes (Hospitalization, Other)
  Sender: FDA-Public Use
  Company Number: GB-AMGEN-GBRSL2020136650

PATIENT
  Age: 19 Year
  Sex: Female

DRUGS (3)
  1. AMGEVITA [Suspect]
     Active Substance: ADALIMUMAB
     Dosage: 80 MILLIGRAM, WEEK 2
     Route: 065
  2. AMGEVITA [Suspect]
     Active Substance: ADALIMUMAB
     Dosage: 40 MILLIGRAM, Q2WK,MAINTENANCE
     Route: 065
  3. AMGEVITA [Suspect]
     Active Substance: ADALIMUMAB
     Indication: COLITIS ULCERATIVE
     Dosage: 160 MILLIGRAM, WEEK 0
     Route: 065

REACTIONS (3)
  - Drug ineffective [Unknown]
  - Colitis ulcerative [Unknown]
  - Mineral supplementation [Unknown]

NARRATIVE: CASE EVENT DATE: 20200821
